FAERS Safety Report 6742827-7 (Version None)
Quarter: 2010Q2

REPORT INFORMATION
  Report Type: 
  Country: None (occurrence: None)
  Receive Date: 20100525
  Receipt Date: 20100512
  Transmission Date: 20101027
  Serious: Yes (Other)
  Sender: FDA-Public Use
  Company Number: 7004718

PATIENT
  Age: 47 Year
  Sex: Female

DRUGS (1)
  1. REBIF [Suspect]
     Indication: MULTIPLE SCLEROSIS
     Dosage: 44 MCG, 3 IN WK, SUBCUTANEOUS
     Route: 058
     Dates: start: 20050830

REACTIONS (4)
  - ANTIPHOSPHOLIPID SYNDROME [None]
  - CARDIOLIPIN ANTIBODY POSITIVE [None]
  - LIVEDO RETICULARIS [None]
  - THROMBOSIS [None]
